FAERS Safety Report 5486095-5 (Version None)
Quarter: 2007Q4

REPORT INFORMATION
  Report Type: 
  Country: None (occurrence: None)
  Receive Date: 20071015
  Receipt Date: 20071003
  Transmission Date: 20080405
  Serious: Yes (Other)
  Sender: FDA-Public Use
  Company Number: JP-PFIZER INC-2007084118

PATIENT
  Age: 79 Year
  Sex: Female

DRUGS (3)
  1. GABAPEN [Suspect]
     Dosage: DAILY DOSE:400MG
     Route: 048
  2. VALPROIC ACID [Concomitant]
     Route: 048
  3. ZONISAMIDE [Concomitant]
     Route: 048

REACTIONS (2)
  - INFLAMMATION [None]
  - URINE OUTPUT DECREASED [None]
